FAERS Safety Report 17685286 (Version 1)
Quarter: 2020Q2

REPORT INFORMATION
  Report Type: Report from Study
  Country: US (occurrence: US)
  Receive Date: 20200420
  Receipt Date: 20200420
  Transmission Date: 20200714
  Serious: Yes (Other)
  Sender: FDA-Public Use
  Company Number: US-ROCHE-2323026

PATIENT
  Sex: Male
  Weight: 87.62 kg

DRUGS (21)
  1. VALCYTE [Suspect]
     Active Substance: VALGANCICLOVIR HYDROCHLORIDE
     Indication: HEART TRANSPLANT
     Dosage: 9 ML EVERY MONDAY, WEDNESDAY, FRIDAY GASTROSTOMY?15 MG SUSPENSION
     Route: 065
     Dates: start: 20181220
  2. TACROLIMUS. [Concomitant]
     Active Substance: TACROLIMUS
     Dosage: 0.5 MG PER ML -6 MG EVERY AM VIA GASTROSTOMY, ONGOING YES
     Route: 065
     Dates: start: 20190319
  3. ALLOPURINOL. [Concomitant]
     Active Substance: ALLOPURINOL
  4. ENOXAPARIN [Concomitant]
     Active Substance: ENOXAPARIN
     Route: 058
  5. PREDNISONE. [Concomitant]
     Active Substance: PREDNISONE
     Dosage: 20 MG DAILY FOR 2 DAYS VIA GASTROSTOMY TUBE,
     Route: 065
     Dates: start: 201903
  6. MYCOPHENOLATE MOFETIL. [Concomitant]
     Active Substance: MYCOPHENOLATE MOFETIL
  7. NPH INSULIN [Concomitant]
     Active Substance: INSULIN BEEF
     Dosage: 2 UNITS DAILY IN AM
     Route: 058
     Dates: start: 201903
  8. METOPROLOL. [Concomitant]
     Active Substance: METOPROLOL
     Indication: HYPERTENSION
     Dosage: 2.5ML TWICE DAILY VIA GASTROSTOMY TUBE, ONGOING YES
     Route: 065
  9. ACETYLCYSTEINE. [Concomitant]
     Active Substance: ACETYLCYSTEINE
     Indication: RESPIRATORY FAILURE
     Dosage: ONGOING YES, 40 ML EVERY 6 HOURS INHALATION- NEBULIZER
     Route: 065
     Dates: start: 20190319
  10. BACTRIM [Concomitant]
     Active Substance: SULFAMETHOXAZOLE\TRIMETHOPRIM
  11. CALCIUM CARBONATE. [Concomitant]
     Active Substance: CALCIUM CARBONATE
     Indication: HYPOCALCAEMIA
     Route: 065
     Dates: start: 201903
  12. COLACE [Concomitant]
     Active Substance: DOCUSATE SODIUM
     Route: 065
     Dates: start: 201903
  13. ALBUTEROL SULFATE;IPRATROPIUM BROMIDE [Concomitant]
     Indication: RESPIRATORY FAILURE
     Dosage: ONGOING YES, 3 ML EVERY 6 HOURS- INHALATION/NEBULIZER
     Route: 065
     Dates: start: 201903
  14. ASPIRIN [ACETYLSALICYLIC ACID] [Concomitant]
     Active Substance: ASPIRIN
     Indication: HEART TRANSPLANT
     Route: 065
     Dates: start: 201903
  15. SCOPOLAMINE [HYOSCINE] [Concomitant]
     Active Substance: SCOPOLAMINE
     Dosage: TRANSDERMAL 1 EVERY 72HOURS, ONGOING YES
     Route: 062
     Dates: start: 20190322
  16. SITAGLIPTIN [Concomitant]
     Active Substance: SITAGLIPTIN
     Dosage: ONGOING YES, ONCE DAILY
     Route: 065
     Dates: start: 20190320
  17. CELLCEPT [Suspect]
     Active Substance: MYCOPHENOLATE MOFETIL\MYCOPHENOLATE MOFETIL HYDROCHLORIDE
     Indication: PRODUCT USED FOR UNKNOWN INDICATION
     Route: 065
  18. FAMOTIDINE. [Concomitant]
     Active Substance: FAMOTIDINE
     Indication: GASTROINTESTINAL DISORDER PROPHYLAXIS
     Route: 065
     Dates: start: 201903
  19. PREDNISONE. [Concomitant]
     Active Substance: PREDNISONE
     Dosage: 15 MG DAILY FOR 2 DAYS VIA GASTROSTOMY
     Route: 065
     Dates: start: 201903
  20. PREDNISONE. [Concomitant]
     Active Substance: PREDNISONE
     Dosage: 10 MG DAILY VIA GASTROSTOMY TUBE,
     Route: 065
     Dates: start: 201903
  21. PREDNISONE. [Concomitant]
     Active Substance: PREDNISONE
     Dosage: DAILY FOR 2 DAYS VAI GASTROSTOMY TUBE
     Route: 065
     Dates: start: 201903

REACTIONS (2)
  - Coma [Unknown]
  - Brain injury [Unknown]
